FAERS Safety Report 7513887-0 (Version None)
Quarter: 2011Q2

REPORT INFORMATION
  Report Type: 
  Country: None (occurrence: None)
  Receive Date: 20110531
  Receipt Date: 20110517
  Transmission Date: 20111010
  Serious: Yes (Hospitalization, Other)
  Sender: FDA-Public Use
  Company Number: PHHY2011MX42531

PATIENT
  Sex: Male

DRUGS (6)
  1. CYCLOSPORINE [Suspect]
     Indication: IMMUNOSUPPRESSION
  2. AZATHIOPRINE [Concomitant]
     Indication: RENAL TRANSPLANT
  3. PREDNISONE [Concomitant]
     Indication: RENAL TRANSPLANT
  4. CYCLOSPORINE [Suspect]
     Indication: RENAL TRANSPLANT
  5. AZATHIOPRINE [Concomitant]
     Indication: IMMUNOSUPPRESSION
  6. PREDNISONE [Concomitant]
     Indication: IMMUNOSUPPRESSION

REACTIONS (5)
  - PARAESTHESIA [None]
  - ATRIOVENTRICULAR BLOCK [None]
  - HEADACHE [None]
  - BRAIN STEM INFARCTION [None]
  - DIZZINESS [None]
